FAERS Safety Report 9645620 (Version 1)
Quarter: 2013Q4

REPORT INFORMATION
  Report Type: Spontaneous
  Country: US (occurrence: None)
  Receive Date: 20131024
  Receipt Date: 20131024
  Transmission Date: 20140711
  Serious: No
  Sender: FDA-Public Use
  Company Number: None

PATIENT
  Age: 62 Year
  Sex: Male
  Weight: 135.3 kg

DRUGS (1)
  1. AZILSARTAN\CHLOTHALIDONE [Suspect]
     Indication: HYPERTENSION
     Route: 048
     Dates: end: 20131018

REACTIONS (1)
  - Hyperkalaemia [None]
